FAERS Safety Report 5598102-X (Version None)
Quarter: 2008Q1

REPORT INFORMATION
  Report Type: 
  Country: None (occurrence: None)
  Receive Date: 20080122
  Receipt Date: 20080109
  Transmission Date: 20080703
  Serious: Yes (Hospitalization)
  Sender: FDA-Public Use
  Company Number: PHHY2008AR00554

PATIENT
  Age: 37 Year
  Sex: Female

DRUGS (2)
  1. CALCITRIOL [Concomitant]
  2. ACLASTA [Suspect]
     Indication: OSTEOPOROSIS
     Dosage: 1 AMP ANNUAL
     Dates: start: 20071019

REACTIONS (5)
  - ASTHENIA [None]
  - BED REST [None]
  - HEADACHE [None]
  - INFLUENZA LIKE ILLNESS [None]
  - PHOTOPHOBIA [None]
